FAERS Safety Report 12467478 (Version 1)
Quarter: 2016Q2

REPORT INFORMATION
  Report Type: Spontaneous
  Country: US (occurrence: None)
  Receive Date: 20160614
  Receipt Date: 20160614
  Transmission Date: 20160815
  Serious: Yes (Hospitalization, Other)
  Sender: FDA-Public Use
  Company Number: None

PATIENT
  Age: 7 Year
  Sex: Female
  Weight: 22.68 kg

DRUGS (3)
  1. FIBER GUMMY SUPPLEMENT [Concomitant]
  2. FELBATOL [Concomitant]
     Active Substance: FELBAMATE
  3. OXCARBAZEPINE ORAL SUSPENSION, 300 MG PER 5 ML SANDOZ [Suspect]
     Active Substance: OXCARBAZEPINE
     Indication: PARTIAL SEIZURES
     Route: 048
     Dates: start: 20151014, end: 20160613

REACTIONS (7)
  - Seizure [None]
  - Nausea [None]
  - Product substitution issue [None]
  - Drug ineffective [None]
  - Partial seizures [None]
  - Diplopia [None]
  - Dizziness [None]

NARRATIVE: CASE EVENT DATE: 20160610
